FAERS Safety Report 12758522 (Version 1)
Quarter: 2016Q3

REPORT INFORMATION
  Report Type: Report from Study
  Country: BR (occurrence: BR)
  Receive Date: 20160919
  Receipt Date: 20160919
  Transmission Date: 20161109
  Serious: Yes (Death, Other)
  Sender: FDA-Public Use
  Company Number: PHHY2016BR128287

PATIENT
  Age: 24 Year
  Sex: Female

DRUGS (1)
  1. EXJADE [Suspect]
     Active Substance: DEFERASIROX
     Indication: SICKLE CELL ANAEMIA
     Dosage: 625 MG, TID (CONCENTRATION WAS 500 MG AND 125 MG)
     Route: 065

REACTIONS (3)
  - Death [Fatal]
  - Cardiomegaly [Unknown]
  - Systemic lupus erythematosus [Unknown]
